FAERS Safety Report 13438012 (Version 2)
Quarter: 2017Q2

REPORT INFORMATION
  Report Type: Spontaneous
  Country: IT (occurrence: IT)
  Receive Date: 20170413
  Receipt Date: 20170424
  Transmission Date: 20170830
  Serious: Yes (Other)
  Sender: FDA-Public Use
  Company Number: IT-PFIZER INC-2017159980

PATIENT
  Age: 87 Year
  Sex: Female

DRUGS (3)
  1. COUMADIN [Concomitant]
     Active Substance: WARFARIN SODIUM
     Dosage: UNK
  2. TARGIN [Suspect]
     Active Substance: NALOXONE HYDROCHLORIDE\OXYCODONE HYDROCHLORIDE
     Indication: SCIATICA
     Dosage: UNK
     Dates: start: 20170403, end: 20170404
  3. FENTANEST [Suspect]
     Active Substance: FENTANYL CITRATE
     Indication: PAIN
     Dosage: 1 DF, TOTAL
     Route: 048
     Dates: start: 20170404, end: 20170404

REACTIONS (3)
  - Nausea [Recovering/Resolving]
  - Vomiting [Recovering/Resolving]
  - Vertigo [Recovering/Resolving]

NARRATIVE: CASE EVENT DATE: 20170404
